FAERS Safety Report 21194815 (Version 2)
Quarter: 2023Q1

REPORT INFORMATION
  Report Type: Spontaneous
  Country: BR (occurrence: BR)
  Receive Date: 20220810
  Receipt Date: 20230221
  Transmission Date: 20230418
  Serious: Yes (Other)
  Sender: FDA-Public Use
  Company Number: BR-PFIZER INC-202201045973

PATIENT
  Age: 61 Year
  Sex: Female

DRUGS (1)
  1. FLUCONAZOLE [Suspect]
     Active Substance: FLUCONAZOLE
     Indication: Fungal infection
     Dosage: 150 MG

REACTIONS (7)
  - Drug hypersensitivity [Unknown]
  - Vulvovaginal dryness [Unknown]
  - Skin burning sensation [Unknown]
  - Pruritus [Unknown]
  - Dry mouth [Unknown]
  - Rash macular [Unknown]
  - Rash vesicular [Unknown]

NARRATIVE: CASE EVENT DATE: 20220807
